FAERS Safety Report 5763984-5 (Version None)
Quarter: 2008Q2

REPORT INFORMATION
  Report Type: 
  Country: None (occurrence: None)
  Receive Date: 20080606
  Receipt Date: 20080606
  Transmission Date: 20081010
  Serious: No
  Sender: FDA-Public Use
  Company Number: None

PATIENT
  Age: 18 Year
  Sex: Male
  Weight: 70.3075 kg

DRUGS (1)
  1. VANCOMYCIN [Suspect]
     Indication: BACTERIAL INFECTION
     Dosage: IV
     Route: 042
     Dates: start: 20080530, end: 20080608

REACTIONS (2)
  - DEVICE MALFUNCTION [None]
  - INCORRECT DOSE ADMINISTERED [None]
